FAERS Safety Report 15017338 (Version 1)
Quarter: 2018Q2

REPORT INFORMATION
  Report Type: Spontaneous
  Country: US (occurrence: US)
  Receive Date: 20180531
  Receipt Date: 20180531
  Transmission Date: 20180711
  Serious: Yes (Other)
  Sender: FDA-Public Use
  Company Number: None

PATIENT
  Age: 68 Year
  Sex: Female
  Weight: 60.75 kg

DRUGS (8)
  1. TEMAZEPAM. [Concomitant]
     Active Substance: TEMAZEPAM
  2. CITALOPRAM [Concomitant]
     Active Substance: CITALOPRAM HYDROBROMIDE
  3. GARLIC. [Concomitant]
     Active Substance: GARLIC
  4. STOOL SOFTNER [Concomitant]
  5. EPCLUSA [Suspect]
     Active Substance: SOFOSBUVIR\VELPATASVIR
     Indication: HEPATITIS C
     Dosage: ?          QUANTITY:1 TABLET(S);?
     Route: 048
     Dates: start: 20171005, end: 20171226
  6. BUPROPION. [Concomitant]
     Active Substance: BUPROPION
  7. CARB/LEVO [Concomitant]
     Active Substance: CARBIDOPA\LEVODOPA
  8. CENTRUM MULTIVITAMIN [Concomitant]

REACTIONS (7)
  - Dry skin [None]
  - Erythema [None]
  - Fatigue [None]
  - Swelling face [None]
  - Histrionic personality disorder [None]
  - Lip dry [None]
  - Anger [None]

NARRATIVE: CASE EVENT DATE: 20171005
